FAERS Safety Report 16688602 (Version 2)
Quarter: 2019Q3

REPORT INFORMATION
  Report Type: Report from Study
  Country: GB (occurrence: GB)
  Receive Date: 20190809
  Receipt Date: 20190926
  Transmission Date: 20191004
  Serious: Yes (Hospitalization)
  Sender: FDA-Public Use
  Company Number: GB-ROCHE-2256186

PATIENT
  Age: 91 Year
  Sex: Male
  Weight: 68 kg

DRUGS (5)
  1. ATORVASTATIN [Concomitant]
     Active Substance: ATORVASTATIN
     Indication: PRODUCT USED FOR UNKNOWN INDICATION
     Route: 065
     Dates: start: 20190113
  2. CLOPIDOGREL [Concomitant]
     Active Substance: CLOPIDOGREL BISULFATE
     Indication: PRODUCT USED FOR UNKNOWN INDICATION
     Route: 065
     Dates: start: 20190113
  3. EDOXABAN [Concomitant]
     Active Substance: EDOXABAN TOSYLATE
     Indication: PRODUCT USED FOR UNKNOWN INDICATION
     Route: 048
     Dates: start: 20181223
  4. TENECTEPLASE [Suspect]
     Active Substance: TENECTEPLASE
     Indication: ISCHAEMIC STROKE
     Route: 042
  5. ALTEPLASE. [Suspect]
     Active Substance: ALTEPLASE
     Indication: ISCHAEMIC STROKE
     Dosage: NR (ONCE)
     Route: 042
     Dates: start: 20190112

REACTIONS (3)
  - Left ventricular failure [Not Recovered/Not Resolved]
  - Cardiac failure congestive [Recovered/Resolved with Sequelae]
  - Pulmonary oedema [Not Recovered/Not Resolved]

NARRATIVE: CASE EVENT DATE: 20190122
